FAERS Safety Report 14795151 (Version 2)
Quarter: 2018Q2

REPORT INFORMATION
  Report Type: Spontaneous
  Country: JP (occurrence: JP)
  Receive Date: 20180423
  Receipt Date: 20180507
  Transmission Date: 20180711
  Serious: Yes (Death, Other)
  Sender: FDA-Public Use
  Company Number: JP-SUNOVION-2018SUN001585

PATIENT
  Age: 4 Decade
  Sex: Male

DRUGS (4)
  1. NITRAZEPAM [Suspect]
     Active Substance: NITRAZEPAM
     Dosage: DOSE UNKNOWN
     Route: 065
  2. PHENOBARBITAL. [Suspect]
     Active Substance: PHENOBARBITAL
     Dosage: DOSE UNKNOWN
     Route: 065
  3. LUNESTA [Suspect]
     Active Substance: ESZOPICLONE
     Indication: INSOMNIA
     Dosage: DOSE UNKNOWN
     Route: 048
  4. SILECE [Suspect]
     Active Substance: FLUNITRAZEPAM
     Indication: INSOMNIA
     Dosage: DOSE UNKNOWN
     Route: 048

REACTIONS (1)
  - Death [Fatal]
